FAERS Safety Report 12211259 (Version 1)
Quarter: 2016Q1

REPORT INFORMATION
  Report Type: Spontaneous
  Country: US (occurrence: US)
  Receive Date: 20160325
  Receipt Date: 20160325
  Transmission Date: 20160526
  Serious: No
  Sender: FDA-Public Use
  Company Number: US-TEVA-642511USA

PATIENT
  Sex: Female
  Weight: 47.22 kg

DRUGS (10)
  1. COPAXONE [Suspect]
     Active Substance: GLATIRAMER ACETATE
     Indication: MULTIPLE SCLEROSIS
     Route: 058
     Dates: start: 2004
  2. RESTASIS [Concomitant]
     Active Substance: CYCLOSPORINE
  3. AMPYRA [Concomitant]
     Active Substance: DALFAMPRIDINE
  4. FOSAMAX [Concomitant]
     Active Substance: ALENDRONATE SODIUM
  5. FISH OIL [Concomitant]
     Active Substance: FISH OIL
  6. VITAMIN D [Concomitant]
     Active Substance: CHOLECALCIFEROL
  7. DETROL LA [Concomitant]
     Active Substance: TOLTERODINE TARTRATE
  8. ZOCOR [Concomitant]
     Active Substance: SIMVASTATIN
  9. MULTIVITAMIN [Concomitant]
     Active Substance: VITAMINS
  10. GABAPENTIN. [Concomitant]
     Active Substance: GABAPENTIN

REACTIONS (2)
  - Injection site reaction [Unknown]
  - Lipoatrophy [Unknown]
